FAERS Safety Report 12375260 (Version 1)
Quarter: 2016Q2

REPORT INFORMATION
  Report Type: Spontaneous
  Country: US (occurrence: None)
  Receive Date: 20160516
  Receipt Date: 20160516
  Transmission Date: 20160815
  Serious: Yes (Life-Threatening, Hospitalization, Other)
  Sender: FDA-Public Use
  Company Number: None

PATIENT
  Age: 57 Year
  Sex: Female
  Weight: 64.86 kg

DRUGS (1)
  1. NEUPRO [Suspect]
     Active Substance: ROTIGOTINE
     Indication: RESTLESS LEGS SYNDROME
     Dosage: ONCE A DAY APPLIED AS MEDICATED PATCH TO SKIN
     Dates: start: 20130301, end: 20131005

REACTIONS (2)
  - Road traffic accident [None]
  - Loss of consciousness [None]

NARRATIVE: CASE EVENT DATE: 20131003
